FAERS Safety Report 20655815 (Version 1)
Quarter: 2022Q1

REPORT INFORMATION
  Report Type: Other
  Country: US (occurrence: US)
  Receive Date: 20220330
  Receipt Date: 20220330
  Transmission Date: 20220424
  Serious: Yes (Hospitalization)
  Sender: FDA-Public Use
  Company Number: US-Genus_Lifesciences-USA-POI0580202200153

PATIENT
  Age: 35 Year
  Sex: Male

DRUGS (1)
  1. GOPRELTO [Suspect]
     Active Substance: COCAINE HYDROCHLORIDE
     Indication: Product used for unknown indication
     Dosage: UNKNOWN
     Dates: start: 2022

REACTIONS (1)
  - Penile necrosis [Recovering/Resolving]

NARRATIVE: CASE EVENT DATE: 20220101
